FAERS Safety Report 17212267 (Version 1)
Quarter: 2019Q4

REPORT INFORMATION
  Report Type: Spontaneous
  Country: DE (occurrence: DE)
  Receive Date: 20191230
  Receipt Date: 20191230
  Transmission Date: 20200122
  Serious: Yes (Life-Threatening, Hospitalization)
  Sender: FDA-Public Use
  Company Number: DE-TEVA-2019-DE-1158713

PATIENT
  Age: 88 Year
  Sex: Male

DRUGS (14)
  1. ATORVASTATIN [Concomitant]
     Active Substance: ATORVASTATIN
     Dosage: 40 MILLIGRAM DAILY;
  2. LORAZEPAM. [Suspect]
     Active Substance: LORAZEPAM
     Dosage: 0.5 MG, DEMAND (ADDITIONAL INFORMATION: MEDICATION ERROR)
  3. METAMIZOL [Concomitant]
     Active Substance: METAMIZOLE SODIUM
     Dosage: 1 G, DEMAND; UP TO 4X/D
  4. ACETYLSALICYLSAEURE [Concomitant]
     Active Substance: ASPIRIN
     Dosage: 100 MILLIGRAM DAILY;
  5. LEVOCETIRIZINE [Concomitant]
     Active Substance: LEVOCETIRIZINE
     Dosage: 5 MG, NEED
  6. SERTRALIN [Suspect]
     Active Substance: SERTRALINE HYDROCHLORIDE
     Dosage: 100 MILLIGRAM DAILY; ADDITIONAL INFORMATION: MEDICATION ERROR
  7. FENTANYL. [Suspect]
     Active Substance: FENTANYL
     Dosage: 75 MICROGRAMS/H, CHANGE MO AND DO, PLASTER TRANSDERMAL (ADDITIONAL INFORMATION: MEDICATION ERROR)
     Route: 062
  8. CALCET 950MG [Concomitant]
     Dosage: 2850 MILLIGRAM DAILY;
  9. TORASEMID [Concomitant]
     Active Substance: TORSEMIDE
     Dosage: 100 MG, 1-0-0-0; ON DIALYSIS-FREE DAYS
  10. MADOPAR 125MG [Concomitant]
     Active Substance: BENSERAZIDE HYDROCHLORIDE\LEVODOPA
     Dosage: 100|25 MG, 0-0-1-1
  11. PANTOPRAZOL [Concomitant]
     Active Substance: PANTOPRAZOLE SODIUM
     Dosage: 40 MILLIGRAM DAILY;
  12. HEPARIN [Concomitant]
     Active Substance: HEPARIN SODIUM
     Dosage: 5000 IE, 1-0-1-0; ON DIALYSIS-FREE DAYS
  13. MOVICOL [Concomitant]
     Active Substance: POLYETHYLENE GLYCOL 3350\POTASSIUM CHLORIDE\SODIUM BICARBONATE\SODIUM CHLORIDE
     Dosage: NK MG, DEMAND
  14. FOSTER 100/6MIKROGRAMM [Concomitant]
     Dosage: 100|6 UG, 1-0-1-0

REACTIONS (2)
  - Depressed level of consciousness [Unknown]
  - Product prescribing error [Unknown]

NARRATIVE: CASE EVENT DATE: 20170510
